FAERS Safety Report 20157327 (Version 1)
Quarter: 2021Q4

REPORT INFORMATION
  Report Type: Spontaneous
  Country: US (occurrence: US)
  Receive Date: 20211207
  Receipt Date: 20211207
  Transmission Date: 20220303
  Serious: No
  Sender: FDA-Public Use
  Company Number: US-FERRINGPH-2020FE07743

PATIENT
  Age: 39 Year
  Sex: Female
  Weight: 53 kg

DRUGS (1)
  1. MENOPUR [Suspect]
     Active Substance: FOLLITROPIN\LUTEINIZING HORMONE
     Indication: Ovulation induction
     Dosage: UNK
     Route: 058
     Dates: start: 2020

REACTIONS (1)
  - Therapeutic response decreased [Unknown]
